FAERS Safety Report 22182864 (Version 2)
Quarter: 2023Q2

REPORT INFORMATION
  Report Type: Spontaneous
  Country: US (occurrence: US)
  Receive Date: 20230406
  Receipt Date: 20230425
  Transmission Date: 20230722
  Serious: No
  Sender: FDA-Public Use
  Company Number: US-ALLERGAN-2300222US

PATIENT
  Age: 59 Year
  Sex: Female
  Weight: 57.152 kg

DRUGS (7)
  1. QULIPTA [Suspect]
     Active Substance: ATOGEPANT
     Indication: Migraine
     Dosage: 60 MG, HS
     Route: 048
     Dates: start: 20220830, end: 20230210
  2. BOTOX [Concomitant]
     Active Substance: ONABOTULINUMTOXINA
     Indication: Migraine
     Dosage: UNK, SINGLE
     Dates: start: 20220830, end: 20220830
  3. EMGALITY [Concomitant]
     Active Substance: GALCANEZUMAB-GNLM
     Indication: Migraine
     Dosage: UNK, Q MONTH
     Route: 058
     Dates: start: 20220830
  4. PROZAC [Concomitant]
     Active Substance: FLUOXETINE HYDROCHLORIDE
     Indication: Depression
     Dosage: 20 MG, DAILY
     Route: 048
     Dates: start: 1990
  5. PROZAC [Concomitant]
     Active Substance: FLUOXETINE HYDROCHLORIDE
     Indication: Anxiety
  6. PROTONIX [Concomitant]
     Active Substance: PANTOPRAZOLE SODIUM
     Indication: Gastrooesophageal reflux disease
     Dosage: PILLS, 40 DAILY
     Route: 048
     Dates: start: 2020
  7. ESTRACE [Concomitant]
     Active Substance: ESTRADIOL
     Indication: Menopause
     Dosage: PILL, 0.5 DAILY
     Route: 048
     Dates: start: 2022

REACTIONS (1)
  - Gastrointestinal disorder [Recovered/Resolved]

NARRATIVE: CASE EVENT DATE: 20221208
